FAERS Safety Report 9076004 (Version 1)
Quarter: 2013Q1

REPORT INFORMATION
  Report Type: Spontaneous
  Country: DE (occurrence: DE)
  Receive Date: 20130129
  Receipt Date: 20130129
  Transmission Date: 20140127
  Serious: Yes (Death)
  Sender: FDA-Public Use
  Company Number: DE-AMGEN-300255

PATIENT
  Age: 21 Year
  Sex: Male
  Weight: 78 kg

DRUGS (15)
  1. NEUPOGEN [Suspect]
     Indication: BONE MARROW TRANSPLANT
     Dosage: 800 MUG, UNK
     Route: 042
     Dates: start: 19920709, end: 19920720
  2. ACICLOVIR [Concomitant]
     Dosage: UNK UNK, UNK
     Dates: start: 19920701, end: 19920728
  3. CICLOSPORIN [Concomitant]
     Dosage: UNK UNK, UNK
     Dates: start: 19920630, end: 19920728
  4. AMPHOTERICIN B [Concomitant]
     Dosage: UNK UNK, UNK
     Dates: start: 19920620, end: 19920728
  5. CEFTAZIDIME [Concomitant]
     Dosage: UNK UNK, UNK
     Dates: start: 19920623, end: 19920715
  6. VANCOMYCIN HYDROCHLORIDE [Concomitant]
     Dosage: UNK UNK, UNK
     Dates: start: 19920623, end: 19920728
  7. ZIENAM [Concomitant]
     Dosage: UNK UNK, UNK
     Dates: start: 19920716, end: 19920728
  8. MORPHINE [Concomitant]
     Dosage: UNK UNK, UNK
     Dates: start: 19920704, end: 19920728
  9. ACETYLCYSTEINE [Concomitant]
     Dosage: UNK UNK, UNK
     Dates: start: 19920708, end: 19920718
  10. SPIRONOLACTONE [Concomitant]
     Dosage: UNK UNK, UNK
     Dates: start: 19920724, end: 19920728
  11. FUROSEMIDE [Concomitant]
     Dosage: UNK UNK, UNK
     Dates: start: 19920722, end: 19920728
  12. ALPROSTADIL [Concomitant]
     Dosage: UNK UNK, UNK
     Dates: start: 19920713, end: 19920728
  13. BUSULFAN [Concomitant]
  14. CYCLOPHOSPHAMIDE [Concomitant]
  15. ETOPOSIDE [Concomitant]

REACTIONS (2)
  - Death [Fatal]
  - Bone pain [Not Recovered/Not Resolved]
